FAERS Safety Report 22905133 (Version 3)
Quarter: 2024Q1

REPORT INFORMATION
  Report Type: Spontaneous
  Country: US (occurrence: US)
  Receive Date: 20230905
  Receipt Date: 20240212
  Transmission Date: 20240410
  Serious: No
  Sender: FDA-Public Use
  Company Number: US-ALCON LABORATORIES-ALC2023US004054

PATIENT
  Age: 84 Year
  Sex: Female

DRUGS (2)
  1. RHOPRESSA [Suspect]
     Active Substance: NETARSUDIL MESYLATE
     Indication: Product used for unknown indication
     Dosage: ONE DROP IN THE EVENING (ONCE A DAY) IN BOTH EYES.
     Route: 047
  2. BRINZOLAMIDE [Concomitant]
     Active Substance: BRINZOLAMIDE
     Indication: Product used for unknown indication
     Dosage: 3 TIMES A DAY
     Route: 065

REACTIONS (2)
  - Glaucoma [Recovered/Resolved]
  - Product storage error [Unknown]
